FAERS Safety Report 10534803 (Version 5)
Quarter: 2015Q2

REPORT INFORMATION
  Report Type: Spontaneous
  Country: US (occurrence: US)
  Receive Date: 20141022
  Receipt Date: 20150524
  Transmission Date: 20150821
  Serious: Yes (Other)
  Sender: FDA-Public Use
  Company Number: US-JNJFOC-20140707999

PATIENT
  Sex: Female
  Weight: 117.94 kg

DRUGS (14)
  1. LIPITOR [Concomitant]
     Active Substance: ATORVASTATIN CALCIUM
     Indication: BLOOD CHOLESTEROL
  2. RYTHMOL [Concomitant]
     Active Substance: PROPAFENONE HYDROCHLORIDE
     Indication: TACHYCARDIA
  3. INVOKANA [Suspect]
     Active Substance: CANAGLIFLOZIN
     Indication: DIABETES MELLITUS
     Route: 048
     Dates: start: 2014, end: 2014
  4. GLIMEPIRIDE. [Concomitant]
     Active Substance: GLIMEPIRIDE
     Indication: DIABETES MELLITUS
  5. LYRICA [Concomitant]
     Active Substance: PREGABALIN
     Indication: NEUROPATHY PERIPHERAL
  6. DIVON (DICLOFENAC) [Concomitant]
     Indication: BLOOD PRESSURE
  7. INVOKANA [Suspect]
     Active Substance: CANAGLIFLOZIN
     Indication: DIABETES MELLITUS
     Route: 048
     Dates: start: 2014
  8. INVOKANA [Suspect]
     Active Substance: CANAGLIFLOZIN
     Indication: DIABETES MELLITUS
     Route: 048
     Dates: start: 2014, end: 2014
  9. BUTRANS [Concomitant]
     Active Substance: BUPRENORPHINE
     Indication: BACK PAIN
  10. CYMBALTA [Concomitant]
     Active Substance: DULOXETINE HYDROCHLORIDE
     Indication: NEUROPATHY PERIPHERAL
  11. TAZTIA XT [Concomitant]
     Active Substance: DILTIAZEM HYDROCHLORIDE
     Indication: BLOOD PRESSURE
  12. INVOKANA [Suspect]
     Active Substance: CANAGLIFLOZIN
     Indication: DIABETES MELLITUS
     Dosage: 300 MG TABLET  HALF TABLET
     Route: 048
     Dates: start: 2014, end: 2014
  13. BUTRANS [Concomitant]
     Active Substance: BUPRENORPHINE
     Indication: PAIN IN EXTREMITY
  14. PLAVIX [Concomitant]
     Active Substance: CLOPIDOGREL BISULFATE
     Indication: BLOOD PRESSURE

REACTIONS (9)
  - Urinary incontinence [Not Recovered/Not Resolved]
  - Cystitis [Unknown]
  - Micturition urgency [Not Recovered/Not Resolved]
  - Dry mouth [Not Recovered/Not Resolved]
  - Pollakiuria [Not Recovered/Not Resolved]
  - Urine output increased [Not Recovered/Not Resolved]
  - Blood glucose fluctuation [Unknown]
  - Wrong technique in drug usage process [Unknown]
  - Fungal infection [Recovered/Resolved]

NARRATIVE: CASE EVENT DATE: 2014
